FAERS Safety Report 4441522-7 (Version None)
Quarter: 2004Q3

REPORT INFORMATION
  Report Type: 
  Country: None (occurrence: None)
  Receive Date: 20040907
  Receipt Date: 20040505
  Transmission Date: 20050211
  Serious: Yes (Death)
  Sender: FDA-Public Use
  Company Number: 2004212028US

PATIENT
  Sex: Female

DRUGS (3)
  1. CELEBREX [Suspect]
     Dosage: 200 MG
     Dates: start: 20030101
  2. XELODA [Concomitant]
  3. CHEMO [Concomitant]

REACTIONS (1)
  - DEATH [None]
